FAERS Safety Report 24446915 (Version 1)
Quarter: 2024Q4

REPORT INFORMATION
  Report Type: Spontaneous
  Country: IL (occurrence: IL)
  Receive Date: 20241016
  Receipt Date: 20241016
  Transmission Date: 20250115
  Serious: Yes (Life-Threatening, Hospitalization, Other)
  Sender: BAUSCH AND LOMB
  Company Number: IL-BAUSCH-BL-2024-015339

PATIENT
  Age: 25 Year
  Sex: Male

DRUGS (2)
  1. WELLBUTRIN XL [Suspect]
     Active Substance: BUPROPION HYDROCHLORIDE
     Indication: Product used for unknown indication
     Route: 065
     Dates: start: 20240124
  2. ZYPREXA [Concomitant]
     Active Substance: OLANZAPINE
     Indication: Product used for unknown indication

REACTIONS (7)
  - Loss of consciousness [Unknown]
  - Seizure [Unknown]
  - Decreased appetite [Unknown]
  - Dyskinesia [Unknown]
  - Blood pressure increased [Unknown]
  - Asthenia [Unknown]
  - Heart rate increased [Unknown]
